FAERS Safety Report 8845918 (Version 2)
Quarter: 2015Q2

REPORT INFORMATION
  Report Type: Report from Study
  Country: US (occurrence: US)
  Receive Date: 20121017
  Receipt Date: 20150624
  Transmission Date: 20150821
  Serious: Yes (Hospitalization)
  Sender: FDA-Public Use
  Company Number: US-ROCHE-1146290

PATIENT
  Sex: Female
  Weight: 19.3 kg

DRUGS (2)
  1. NUTROPIN AQ [Suspect]
     Active Substance: SOMATROPIN
     Indication: CHRONIC KIDNEY DISEASE
     Dosage: 0.14 CC, INJ VOLUME 0.9 CC, 7 INJECTIONS/WEEK
     Route: 058
  2. NUTROPIN AQ [Suspect]
     Active Substance: SOMATROPIN
     Indication: AZOTAEMIA

REACTIONS (2)
  - Malaise [Unknown]
  - Incorrect dose administered [Unknown]
